FAERS Safety Report 5392990-8 (Version None)
Quarter: 2007Q3

REPORT INFORMATION
  Report Type: 
  Country: None (occurrence: None)
  Receive Date: 20070719
  Receipt Date: 20070705
  Transmission Date: 20080115
  Serious: Yes (Other)
  Sender: FDA-Public Use
  Company Number: T200700781

PATIENT

DRUGS (1)
  1. OPTIRAY 300 [Suspect]
     Dosage: SINGLE

REACTIONS (3)
  - BURNING SENSATION [None]
  - CHEST PAIN [None]
  - THROAT TIGHTNESS [None]
